FAERS Safety Report 19885952 (Version 1)
Quarter: 2021Q3

REPORT INFORMATION
  Report Type: Report from Study
  Country: US (occurrence: US)
  Receive Date: 20210927
  Receipt Date: 20210927
  Transmission Date: 20211014
  Serious: Yes (Other)
  Sender: FDA-Public Use
  Company Number: US-JAZZ-2021-US-016627

PATIENT
  Age: 36 Year
  Sex: Female

DRUGS (3)
  1. XYWAV [Suspect]
     Active Substance: CALCIUM OXYBATE\MAGNESIUM OXYBATE\POTASSIUM OXYBATE\SODIUM OXYBATE
     Indication: CATAPLEXY
  2. WAKIX [Suspect]
     Active Substance: PITOLISANT HYDROCHLORIDE
     Indication: PRODUCT USED FOR UNKNOWN INDICATION
  3. XYWAV [Suspect]
     Active Substance: CALCIUM OXYBATE\MAGNESIUM OXYBATE\POTASSIUM OXYBATE\SODIUM OXYBATE
     Indication: NARCOLEPSY
     Dosage: 2.25 GRAM, BID
     Route: 048
     Dates: start: 202108

REACTIONS (29)
  - Micturition urgency [Not Recovered/Not Resolved]
  - Migraine [Not Recovered/Not Resolved]
  - Tremor [Unknown]
  - Dizziness [Unknown]
  - Night sweats [Not Recovered/Not Resolved]
  - Euphoric mood [Not Recovered/Not Resolved]
  - Depression [Unknown]
  - Condition aggravated [Not Recovered/Not Resolved]
  - Asthenia [Unknown]
  - Panic attack [Unknown]
  - Arnold-Chiari malformation [Not Recovered/Not Resolved]
  - Condition aggravated [Not Recovered/Not Resolved]
  - Muscle spasms [Not Recovered/Not Resolved]
  - Sluggishness [Not Recovered/Not Resolved]
  - Asthma [Unknown]
  - Restless legs syndrome [Not Recovered/Not Resolved]
  - Dry mouth [Unknown]
  - Feeling jittery [Not Recovered/Not Resolved]
  - Nightmare [Unknown]
  - Pre-existing condition improved [Unknown]
  - Urinary retention [Unknown]
  - Cataplexy [Unknown]
  - Psychotic disorder [Unknown]
  - Condition aggravated [Not Recovered/Not Resolved]
  - Nausea [Not Recovered/Not Resolved]
  - Blood pressure increased [Not Recovered/Not Resolved]
  - Paraesthesia [Unknown]
  - Anxiety [Not Recovered/Not Resolved]
  - Agitation [Not Recovered/Not Resolved]

NARRATIVE: CASE EVENT DATE: 2021
